FAERS Safety Report 10486325 (Version 1)
Quarter: 2014Q3

REPORT INFORMATION
  Report Type: Spontaneous
  Country: VE (occurrence: None)
  Receive Date: 20140929
  Receipt Date: 20140929
  Transmission Date: 20150326
  Serious: Yes (Hospitalization, Other)
  Sender: FDA-Public Use
  Company Number: VAL_03386_2014

PATIENT
  Age: 71 Year
  Sex: Female

DRUGS (4)
  1. PARLODEL [Suspect]
     Active Substance: BROMOCRIPTINE MESYLATE
     Indication: NERVOUS SYSTEM DISORDER
     Dosage: (DF) 2.5 MG FREQUENCY UKNOWN)
     Dates: start: 2009, end: 201408
  2. LIPITOR [Concomitant]
     Active Substance: ATORVASTATIN CALCIUM
  3. RIVOTRIL [Concomitant]
     Active Substance: CLONAZEPAM
  4. EUTHYROX [Concomitant]
     Active Substance: LEVOTHYROXINE SODIUM

REACTIONS (3)
  - Therapy cessation [None]
  - Diabetes mellitus [None]
  - Pneumonia [None]

NARRATIVE: CASE EVENT DATE: 201408
